FAERS Safety Report 7181454-7 (Version None)
Quarter: 2010Q4

REPORT INFORMATION
  Report Type: 
  Country: None (occurrence: None)
  Receive Date: 20101221
  Receipt Date: 20100423
  Transmission Date: 20110411
  Serious: No
  Sender: FDA-Public Use
  Company Number: US-AMGEN-TCS408135

PATIENT

DRUGS (2)
  1. ENBREL [Suspect]
     Indication: PSORIATIC ARTHROPATHY
     Dosage: 50 MG, 2 TIMES/WK
     Route: 058
     Dates: end: 20100421
  2. ENBREL [Suspect]
     Indication: PSORIASIS

REACTIONS (5)
  - BODY TEMPERATURE INCREASED [None]
  - FATIGUE [None]
  - FLUSHING [None]
  - INFLUENZA LIKE ILLNESS [None]
  - PAIN [None]
